FAERS Safety Report 21906915 (Version 5)
Quarter: 2023Q2

REPORT INFORMATION
  Report Type: Report from Study
  Country: GB (occurrence: GB)
  Receive Date: 20230125
  Receipt Date: 20230606
  Transmission Date: 20230721
  Serious: Yes (Other)
  Sender: FDA-Public Use
  Company Number: GB-002147023-NVSC2022GB072109

PATIENT
  Sex: Male

DRUGS (2)
  1. OMNITROPE [Suspect]
     Active Substance: SOMATROPIN
     Indication: Growth hormone deficiency
     Dosage: 0.4 MG
     Route: 065
  2. OMNITROPE [Suspect]
     Active Substance: SOMATROPIN
     Dosage: 0.4 MG
     Route: 065

REACTIONS (5)
  - Device malfunction [Recovered/Resolved]
  - Drug dose omission by device [Recovered/Resolved]
  - Injection site pain [Unknown]
  - Injection site bruising [Unknown]
  - Injection site rash [Unknown]

NARRATIVE: CASE EVENT DATE: 20230116
